FAERS Safety Report 5277516-1 (Version None)
Quarter: 2007Q1

REPORT INFORMATION
  Report Type: 
  Country: None (occurrence: None)
  Receive Date: 20070327
  Receipt Date: 20070319
  Transmission Date: 20070707
  Serious: Yes (Hospitalization)
  Sender: FDA-Public Use
  Company Number: US-ROCHE-486736

PATIENT
  Age: 59 Year
  Sex: Female

DRUGS (4)
  1. TAMIFLU [Suspect]
     Dosage: PATIENT TOOK A TOTAL OF 4 DOSES.
     Route: 048
     Dates: start: 20070301, end: 20070302
  2. UNSPECIFIED DRUG [Concomitant]
  3. VYTORIN [Concomitant]
  4. PROTONIX [Concomitant]

REACTIONS (13)
  - ATRIAL FIBRILLATION [None]
  - CONTUSION [None]
  - DISORIENTATION [None]
  - DYSSTASIA [None]
  - EAR INFECTION [None]
  - FALL [None]
  - HALLUCINATION [None]
  - HEART RATE INCREASED [None]
  - IMPAIRED DRIVING ABILITY [None]
  - LIVER FUNCTION TEST ABNORMAL [None]
  - PNEUMONIA [None]
  - PRURITUS [None]
  - SINUSITIS [None]
